FAERS Safety Report 5588111-9 (Version None)
Quarter: 2008Q1

REPORT INFORMATION
  Report Type: 
  Country: None (occurrence: None)
  Receive Date: 20080111
  Receipt Date: 20080103
  Transmission Date: 20080703
  Serious: Yes (Other)
  Sender: FDA-Public Use
  Company Number: US-ROCHE-539541

PATIENT
  Age: 43 Year
  Sex: Female

DRUGS (2)
  1. PEG-INTERFERON A-2A (RO 25-8310) [Suspect]
     Dosage: FORM REPORTED: PRE FILLED SYRINGES
     Route: 065
     Dates: start: 20071016
  2. RIBAVIRIN [Suspect]
     Dosage: DRUG NAME REPORTED: RIBASPHERE
     Route: 065
     Dates: start: 20071016

REACTIONS (2)
  - BREAST MASS [None]
  - COAGULOPATHY [None]
